FAERS Safety Report 8825164 (Version 3)
Quarter: 2014Q1

REPORT INFORMATION
  Report Type: Spontaneous
  Country: US (occurrence: US)
  Receive Date: 20121004
  Receipt Date: 20140108
  Transmission Date: 20141002
  Serious: Yes (Other)
  Sender: FDA-Public Use
  Company Number: US-GLAXOSMITHKLINE-A0995291A

PATIENT
  Age: 44 Year
  Sex: Male

DRUGS (17)
  1. ARIXTRA [Suspect]
     Indication: DEEP VEIN THROMBOSIS
     Dosage: 7.5MG PER DAY
     Route: 065
     Dates: start: 20110414
  2. FONDAPARINUX SODIUM [Suspect]
     Indication: DEEP VEIN THROMBOSIS
     Dosage: 12.5MG PER DAY
     Route: 058
     Dates: start: 201107
  3. ASPIRIN [Suspect]
     Indication: PRODUCT USED FOR UNKNOWN INDICATION
     Route: 065
  4. FENTANYL PATCH [Concomitant]
  5. LACTULOSE [Concomitant]
  6. DYAZIDE [Concomitant]
  7. CLONIDINE [Concomitant]
  8. MECLIZINE [Concomitant]
  9. ATENOLOL [Concomitant]
  10. ASPIRIN [Concomitant]
  11. CLONAZEPAM [Concomitant]
  12. VIAGRA [Concomitant]
  13. PROMETHAZINE [Concomitant]
  14. TRAMADOL [Concomitant]
  15. TYLENOL + CODEINE [Concomitant]
  16. MORPHINE [Concomitant]
  17. PERCOCET [Concomitant]

REACTIONS (13)
  - Rectal haemorrhage [Recovered/Resolved]
  - Contusion [Recovered/Resolved]
  - Drug level decreased [Recovered/Resolved]
  - Overdose [Recovered/Resolved]
  - Drug ineffective [Unknown]
  - Metabolic disorder [Recovered/Resolved]
  - Off label use [Unknown]
  - Complex regional pain syndrome [Recovered/Resolved]
  - Coagulopathy [Recovered/Resolved]
  - Gait disturbance [Recovered/Resolved]
  - Cardiovascular disorder [Recovered/Resolved]
  - Haemorrhage [Recovered/Resolved]
  - Coagulopathy [Recovered/Resolved]
